FAERS Safety Report 17741661 (Version 4)
Quarter: 2020Q2

REPORT INFORMATION
  Report Type: Spontaneous
  Country: SE (occurrence: SE)
  Receive Date: 20200504
  Receipt Date: 20200622
  Transmission Date: 20200714
  Serious: Yes (Other)
  Sender: FDA-Public Use
  Company Number: SE-SHIRE-SE202014877

PATIENT

DRUGS (8)
  1. LITHIUM. [Suspect]
     Active Substance: LITHIUM
     Indication: FRONTAL LOBE EPILEPSY
  2. LITHIUM. [Suspect]
     Active Substance: LITHIUM
     Indication: SEIZURE
  3. ELVANSE [Suspect]
     Active Substance: LISDEXAMFETAMINE DIMESYLATE
     Indication: PRODUCT USED FOR UNKNOWN INDICATION
     Dosage: UNK, UNKNOWN
     Route: 065
     Dates: start: 201509
  4. LITHIUM. [Suspect]
     Active Substance: LITHIUM
     Indication: BIPOLAR DISORDER
     Dosage: UNK
     Route: 065
  5. LITHIUM. [Suspect]
     Active Substance: LITHIUM
     Indication: PSYCHOTIC DISORDER
  6. ELVANSE [Suspect]
     Active Substance: LISDEXAMFETAMINE DIMESYLATE
     Dosage: 90 MILLIGRAM, 1X/DAY:QD
     Route: 065
  7. ELVANSE [Suspect]
     Active Substance: LISDEXAMFETAMINE DIMESYLATE
     Dosage: UNK
     Route: 065
     Dates: end: 201811
  8. ELVANSE [Suspect]
     Active Substance: LISDEXAMFETAMINE DIMESYLATE
     Dosage: 30 MILLIGRAM, 1X/DAY:QD
     Route: 065

REACTIONS (18)
  - Amnesia [Unknown]
  - Fatigue [Unknown]
  - Aggression [Unknown]
  - Anxiety [Unknown]
  - Arrhythmia [Unknown]
  - Psychotic disorder [Unknown]
  - Depression [Unknown]
  - Feeling abnormal [Unknown]
  - Hypomania [Unknown]
  - Confusional state [Unknown]
  - Mania [Unknown]
  - Craniocerebral injury [Unknown]
  - Bipolar disorder [Unknown]
  - Syncope [Unknown]
  - Head discomfort [Unknown]
  - Euphoric mood [Unknown]
  - Cerebral disorder [Unknown]
  - Frontal lobe epilepsy [Unknown]

NARRATIVE: CASE EVENT DATE: 2016
